FAERS Safety Report 5564334-X (Version None)
Quarter: 2007Q4

REPORT INFORMATION
  Report Type: 
  Country: None (occurrence: None)
  Receive Date: 20071214
  Receipt Date: 20071214
  Transmission Date: 20080405
  Serious: Yes (Hospitalization)
  Sender: FDA-Public Use
  Company Number: None

PATIENT
  Sex: Female
  Weight: 75 kg

DRUGS (4)
  1. FLUOROURACIL [Suspect]
     Dosage: 2642 MG
  2. BEVACIZUMAB (RHUMAB VEGF) [Suspect]
     Dosage: 340 MG
  3. IRINOTECAN (CPT-11, CAMPTOSAR) [Suspect]
     Dosage: 166 MG
  4. LEUCOVORIN CALCIUM [Suspect]
     Dosage: 680 MG

REACTIONS (5)
  - ABDOMINAL PAIN [None]
  - INTESTINAL PERFORATION [None]
  - NAUSEA [None]
  - VOMITING [None]
  - WEIGHT DECREASED [None]
